FAERS Safety Report 8878391 (Version 1)
Quarter: 2012Q4

REPORT INFORMATION
  Report Type: 
  Country: US (occurrence: US)
  Receive Date: 20121025
  Receipt Date: 20121025
  Transmission Date: 20130627
  Serious: No
  Sender: FDA-Public Use
  Company Number: US-AMGEN-USASP2012022297

PATIENT
  Age: 50 Year
  Sex: Female

DRUGS (6)
  1. ENBREL [Suspect]
     Indication: PSORIATIC ARTHROPATHY
     Dosage: 50 mg, qwk
     Route: 058
     Dates: end: 20110701
  2. HUMIRA [Concomitant]
     Dosage: 40 mg, UNK
     Route: 058
  3. SYNTHROID [Concomitant]
     Dosage: 75 mug, UNK
     Route: 048
  4. MULTIVITAMIN                       /00097801/ [Concomitant]
     Dosage: UNK
     Route: 048
  5. VITAMIN C                          /00008001/ [Concomitant]
     Dosage: 1000 mg, UNK
     Route: 048
  6. CALCIUM +D                         /00188401/ [Concomitant]
     Dosage: UNK
     Route: 048

REACTIONS (2)
  - Injection site reaction [Unknown]
  - Drug ineffective [Unknown]
